FAERS Safety Report 25826450 (Version 1)
Quarter: 2025Q3

REPORT INFORMATION
  Report Type: Spontaneous
  Country: US (occurrence: US)
  Receive Date: 20250920
  Receipt Date: 20250920
  Transmission Date: 20251020
  Serious: No
  Sender: ABBVIE
  Company Number: US-ABBVIE-6466382

PATIENT
  Sex: Female

DRUGS (1)
  1. HUMIRA [Suspect]
     Active Substance: ADALIMUMAB
     Indication: Alopecia
     Route: 058

REACTIONS (4)
  - Off label use [Unknown]
  - Dyspnoea [Unknown]
  - Pain in extremity [Unknown]
  - Fall [Unknown]
